FAERS Safety Report 10537509 (Version 1)
Quarter: 2014Q4

REPORT INFORMATION
  Report Type: Spontaneous
  Country: US (occurrence: None)
  Receive Date: 20141022
  Receipt Date: 20141022
  Transmission Date: 20150529
  Serious: Yes (Disabling, Other)
  Sender: FDA-Public Use
  Company Number: None

PATIENT
  Age: 32 Year
  Sex: Female
  Weight: 76.66 kg

DRUGS (1)
  1. PARAGARD T380A [Suspect]
     Active Substance: COPPER
     Indication: CONTRACEPTION
     Dosage: INSERT ONCE VAGINAL
     Route: 067
     Dates: start: 20140804, end: 20141017

REACTIONS (14)
  - Fungal infection [None]
  - Bacterial vaginosis [None]
  - Burning sensation [None]
  - Wound [None]
  - Rash [None]
  - Haemorrhage [None]
  - Local swelling [None]
  - Rhinalgia [None]
  - Rash pruritic [None]
  - Abscess [None]
  - Drug ineffective [None]
  - Vulvovaginal rash [None]
  - Hyperhidrosis [None]
  - Pyrexia [None]

NARRATIVE: CASE EVENT DATE: 20140823
